FAERS Safety Report 5785515-6 (Version None)
Quarter: 2008Q2

REPORT INFORMATION
  Report Type: 
  Country: None (occurrence: None)
  Receive Date: 20080605
  Receipt Date: 20080219
  Transmission Date: 20081010
  Serious: No
  Sender: FDA-Public Use
  Company Number: A0710514A

PATIENT
  Age: 61 Year
  Sex: Female

DRUGS (1)
  1. ALLI [Suspect]
     Dates: end: 20080216

REACTIONS (4)
  - ANORECTAL DISCOMFORT [None]
  - DIARRHOEA [None]
  - RASH [None]
  - WEIGHT INCREASED [None]
